FAERS Safety Report 9291659 (Version 1)
Quarter: 2013Q2

REPORT INFORMATION
  Report Type: Report from Study
  Country: US (occurrence: US)
  Receive Date: 20130515
  Receipt Date: 20130515
  Transmission Date: 20140414
  Serious: Yes (Other)
  Sender: FDA-Public Use
  Company Number: US-US-EMD SERONO, INC.-7210517

PATIENT
  Sex: Male

DRUGS (2)
  1. REBIF [Suspect]
     Indication: PRODUCT USED FOR UNKNOWN INDICATION
     Route: 058
     Dates: start: 20081209
  2. METFORMIN [Concomitant]
     Indication: BLOOD GLUCOSE INCREASED
     Dates: end: 201210

REACTIONS (2)
  - Prostate cancer [Recovering/Resolving]
  - Cystitis [Recovering/Resolving]
